FAERS Safety Report 6526011-8 (Version None)
Quarter: 2010Q1

REPORT INFORMATION
  Report Type: 
  Country: None (occurrence: None)
  Receive Date: 20100104
  Receipt Date: 20091223
  Transmission Date: 20100710
  Serious: Yes (Hospitalization)
  Sender: FDA-Public Use
  Company Number: AR-PFIZER INC-2009314190

PATIENT
  Age: 50 Year
  Sex: Male
  Weight: 65 kg

DRUGS (4)
  1. SUNITINIB MALATE [Suspect]
     Indication: METASTATIC RENAL CELL CARCINOMA
     Dosage: 37.5 MG, 1X/DAY
     Route: 048
     Dates: start: 20071107, end: 20091221
  2. OMEPRAZOLE [Concomitant]
     Indication: GASTRITIS PROPHYLAXIS
     Dosage: 40 MG, SOS
     Route: 048
     Dates: start: 20071130, end: 20091220
  3. OMEPRAZOLE [Concomitant]
     Indication: ABDOMINAL PAIN
     Dosage: 40 MG, 2X/DAY
     Route: 048
     Dates: start: 20091221
  4. METOCLOPRAMIDE [Concomitant]
     Indication: NAUSEA
     Dosage: 35 DROPS, 3X/DAY
     Route: 048
     Dates: start: 20091221

REACTIONS (1)
  - CHOLELITHIASIS [None]
